FAERS Safety Report 13029645 (Version 1)
Quarter: 2016Q4

REPORT INFORMATION
  Report Type: Spontaneous
  Country: RU (occurrence: RU)
  Receive Date: 20161215
  Receipt Date: 20161215
  Transmission Date: 20170207
  Serious: Yes (Hospitalization, Other)
  Sender: FDA-Public Use
  Company Number: RU-BRISTOL-MYERS SQUIBB COMPANY-BMS-2016-106140

PATIENT
  Age: 13 Year
  Sex: Female

DRUGS (2)
  1. THIOCTIC ACID [Concomitant]
     Active Substance: THIOCTIC ACID
     Indication: PRODUCT USED FOR UNKNOWN INDICATION
     Dosage: 300 (UNSPECIFIED UNIT) ONCE
     Route: 065
     Dates: start: 201603
  2. GLUCOPHAGE [Suspect]
     Active Substance: METFORMIN HYDROCHLORIDE
     Indication: HYPERINSULINISM
     Dosage: 500 (UNSPECIFIED UNIT) ONCE
     Route: 065
     Dates: start: 201603

REACTIONS (14)
  - Autonomic nervous system imbalance [Unknown]
  - Blood alkaline phosphatase increased [Unknown]
  - Alanine aminotransferase increased [Unknown]
  - Tachycardia [Unknown]
  - Amylase abnormal [Unknown]
  - Blood pressure increased [Unknown]
  - Diarrhoea [Unknown]
  - Seizure [Unknown]
  - Nausea [Unknown]
  - Aspartate aminotransferase increased [Unknown]
  - Cholelithiasis [Unknown]
  - Abdominal pain upper [Unknown]
  - Hepatomegaly [Unknown]
  - Angina pectoris [Unknown]

NARRATIVE: CASE EVENT DATE: 2016
